FAERS Safety Report 18726057 (Version 1)
Quarter: 2021Q1

REPORT INFORMATION
  Report Type: Spontaneous
  Country: ES (occurrence: ES)
  Receive Date: 20210111
  Receipt Date: 20210111
  Transmission Date: 20210419
  Serious: Yes (Hospitalization)
  Sender: FDA-Public Use
  Company Number: ES-TEVA-2021-ES-1866655

PATIENT
  Age: 29 Year
  Sex: Female

DRUGS (4)
  1. DEXKETOPROFENO (7312A) [Suspect]
     Active Substance: DEXKETOPROFEN
     Route: 065
     Dates: start: 20200731, end: 20200807
  2. OMEPRAZOL (2141A) [Suspect]
     Active Substance: OMEPRAZOLE
     Route: 065
     Dates: start: 20200731
  3. CETIRIZINA (2364A) [Suspect]
     Active Substance: CETIRIZINE HYDROCHLORIDE
     Route: 065
     Dates: start: 20200820
  4. PARACETAMOL (12A) [Suspect]
     Active Substance: ACETAMINOPHEN
     Route: 065
     Dates: start: 20200731

REACTIONS (1)
  - Hepatitis cholestatic [Recovered/Resolved]

NARRATIVE: CASE EVENT DATE: 20200821
